FAERS Safety Report 5373184-9 (Version None)
Quarter: 2007Q2

REPORT INFORMATION
  Report Type: 
  Country: None (occurrence: None)
  Receive Date: 20070626
  Receipt Date: 20070612
  Transmission Date: 20071010
  Serious: Yes (Other)
  Sender: FDA-Public Use
  Company Number: SPI200700246

PATIENT
  Age: 57 Year
  Sex: Female
  Weight: 53.5 kg

DRUGS (6)
  1. AMITIZA [Suspect]
     Indication: CONSTIPATION
     Dosage: 24 MCG, QD, ORAL
     Route: 048
     Dates: start: 20070426, end: 20070504
  2. REQUIP    (ROPINIROL HYDROCHLORIDE) [Concomitant]
  3. CRESTOR                 (ROSUVASTATIN), 10 MG [Concomitant]
  4. AMBIEN                                 (ZOLPIDEM TARTRATE), 12.5 MG [Concomitant]
  5. ZANTAC [Concomitant]
  6. ATARAX                               /00058401/ (HYDROXYZINE) [Concomitant]

REACTIONS (6)
  - DYSPHAGIA [None]
  - DYSPNOEA [None]
  - HYPERSENSITIVITY [None]
  - PHARYNGEAL OEDEMA [None]
  - PHARYNGOLARYNGEAL PAIN [None]
  - THROAT TIGHTNESS [None]
